FAERS Safety Report 7805130-X (Version None)
Quarter: 2011Q4

REPORT INFORMATION
  Report Type: 
  Country: None (occurrence: None)
  Receive Date: 20111010
  Receipt Date: 20110928
  Transmission Date: 20120403
  Serious: Yes (Hospitalization)
  Sender: FDA-Public Use
  Company Number: PHHY2009JP56915

PATIENT
  Age: 80 Year
  Sex: Female

DRUGS (4)
  1. LOXONIN [Suspect]
     Dosage: 180 MG, QD
  2. NSAID'S [Concomitant]
     Indication: BACK PAIN
     Dates: start: 20020101
  3. DICLOFENAC [Suspect]
     Indication: BACK PAIN
     Dosage: 50 MG/DAY (2, 25 MG  TABS A DAY)
     Dates: start: 20020101
  4. LOXONIN [Suspect]
     Indication: BACK PAIN
     Dosage: 80 MG, QD
     Dates: start: 20020101

REACTIONS (14)
  - ILEUS [None]
  - ENTERITIS [None]
  - NAUSEA [None]
  - JEJUNAL ULCER [None]
  - ERYTHEMA [None]
  - FLATULENCE [None]
  - JEJUNAL STENOSIS [None]
  - OEDEMA MUCOSAL [None]
  - GASTROINTESTINAL DISORDER [None]
  - INTESTINAL DILATATION [None]
  - SMALL INTESTINE ULCER [None]
  - ORAL DISORDER [None]
  - ABDOMINAL PAIN [None]
  - INFLAMMATION [None]
